FAERS Safety Report 7364536-6 (Version None)
Quarter: 2011Q1

REPORT INFORMATION
  Report Type: 
  Country: None (occurrence: None)
  Receive Date: 20110321
  Receipt Date: 20110315
  Transmission Date: 20110831
  Serious: Yes (Death, Hospitalization, Other)
  Sender: FDA-Public Use
  Company Number: BR-ABBOTT-11P-020-0708409-00

PATIENT
  Age: 4 Year
  Sex: Male

DRUGS (8)
  1. CLINDAMYCIN [Concomitant]
     Indication: RESPIRATORY TRACT INFECTION
  2. AMIKACIN [Concomitant]
     Indication: RESPIRATORY TRACT INFECTION
  3. DEPAKENE [Suspect]
     Indication: PRODUCT USED FOR UNKNOWN INDICATION
  4. METRONIDAZOLE [Concomitant]
     Indication: RESPIRATORY TRACT INFECTION
  5. AMIODARONE HCL [Concomitant]
     Indication: RESPIRATORY TRACT INFECTION
  6. CEPHALOTHIN [Concomitant]
     Indication: RESPIRATORY TRACT INFECTION
  7. CEFTRIAXONE [Concomitant]
     Indication: RESPIRATORY TRACT INFECTION
  8. CEFEPIME [Concomitant]
     Indication: RESPIRATORY TRACT INFECTION

REACTIONS (11)
  - LIVER INJURY [None]
  - HYPOVOLAEMIC SHOCK [None]
  - SOMNOLENCE [None]
  - MYOCLONIC EPILEPSY [None]
  - PANCREATITIS ACUTE [None]
  - DEPRESSED LEVEL OF CONSCIOUSNESS [None]
  - HEPATIC STEATOSIS [None]
  - HAEMODYNAMIC INSTABILITY [None]
  - JAUNDICE [None]
  - ABDOMINAL PAIN [None]
  - NAUSEA [None]
